FAERS Safety Report 20842913 (Version 1)
Quarter: 2022Q2

REPORT INFORMATION
  Report Type: Spontaneous
  Country: US (occurrence: None)
  Receive Date: 20220517
  Receipt Date: 20220517
  Transmission Date: 20220720
  Serious: No
  Sender: FDA-Public Use
  Company Number: None

PATIENT
  Sex: Male
  Weight: 61.7 kg

DRUGS (3)
  1. CYTARABINE [Suspect]
     Active Substance: CYTARABINE
     Dates: end: 20220504
  2. METHOTREXATE [Suspect]
     Active Substance: METHOTREXATE
     Dates: end: 20220502
  3. SPRYCEL [Suspect]
     Active Substance: DASATINIB
     Dates: end: 20220508

REACTIONS (25)
  - Body temperature increased [None]
  - Diarrhoea [None]
  - Oral pain [None]
  - Dry throat [None]
  - Oropharyngeal pain [None]
  - Oesophageal motility disorder [None]
  - Rectal haemorrhage [None]
  - Lower gastrointestinal haemorrhage [None]
  - Thrombocytopenia [None]
  - Supraventricular tachycardia [None]
  - Pulmonary mass [None]
  - Infection [None]
  - Haemoglobin decreased [None]
  - Gastrooesophageal reflux disease [None]
  - Oesophageal mass [None]
  - Gastric mucosa erythema [None]
  - Coeliac disease [None]
  - Haemorrhoids [None]
  - Colitis [None]
  - Rectal polyp [None]
  - Melaena [None]
  - Neutrophil count decreased [None]
  - Gastrointestinal inflammation [None]
  - Intestinal mucosal hypertrophy [None]
  - Haematochezia [None]

NARRATIVE: CASE EVENT DATE: 20220509
